FAERS Safety Report 19100027 (Version 1)
Quarter: 2021Q2

REPORT INFORMATION
  Report Type: Spontaneous
  Country: GB (occurrence: GB)
  Receive Date: 20210407
  Receipt Date: 20210407
  Transmission Date: 20210717
  Serious: Yes (Disabling)
  Sender: FDA-Public Use
  Company Number: GB-AUROBINDO-AUR-APL-2021-013528

PATIENT
  Age: 31 Year
  Sex: Female
  Weight: 89 kg

DRUGS (7)
  1. TRAMADOL. [Concomitant]
     Active Substance: TRAMADOL
     Indication: ILL-DEFINED DISORDER
     Dosage: UNK (TAKE ONE OR TWO CAPSULES UP TO FOUR TIMES A DAY...)
     Route: 065
     Dates: start: 20210222, end: 20210301
  2. TRAMADOL. [Suspect]
     Active Substance: TRAMADOL
     Indication: ILL-DEFINED DISORDER
     Dosage: UNK
     Route: 065
     Dates: start: 20210326
  3. VARENICLINE [Concomitant]
     Active Substance: VARENICLINE
     Indication: ILL-DEFINED DISORDER
     Dosage: UNK (TAKE ONE TWICE DAILY)
     Route: 065
     Dates: start: 20210216, end: 20210316
  4. CITALOPRAM [Concomitant]
     Active Substance: CITALOPRAM HYDROBROMIDE
     Indication: ILL-DEFINED DISORDER
     Dosage: UNK (TAKE ONE DAILY)
     Route: 065
     Dates: start: 20200330
  5. CHAMPIX [Concomitant]
     Active Substance: VARENICLINE TARTRATE
     Indication: ILL-DEFINED DISORDER
     Dosage: UNK (USE AS DIRECTED BY SMOKING CESSATION CLINIC)
     Route: 065
     Dates: start: 20210122, end: 20210123
  6. LEVOTHYROXINE. [Concomitant]
     Active Substance: LEVOTHYROXINE
     Indication: ILL-DEFINED DISORDER
     Dosage: UNK (TAKE ONE DAILY)
     Route: 065
     Dates: start: 20210109
  7. TRANEXAMIC ACID. [Concomitant]
     Active Substance: TRANEXAMIC ACID
     Indication: ILL-DEFINED DISORDER
     Dosage: UNK (2 TABLETS THREE TIMES A DAY, NORMALLY TAKEN FOR UP TO 4 DAYS IN A ROW TO EASE...)
     Route: 065
     Dates: start: 20210222, end: 20210223

REACTIONS (1)
  - Adverse drug reaction [Recovered/Resolved]

NARRATIVE: CASE EVENT DATE: 20210326
